FAERS Safety Report 23291721 (Version 3)
Quarter: 2023Q4

REPORT INFORMATION
  Report Type: Spontaneous
  Country: GB (occurrence: GB)
  Receive Date: 20231213
  Receipt Date: 20231227
  Transmission Date: 20240109
  Serious: Yes (Life-Threatening, Hospitalization, Other)
  Sender: FDA-Public Use
  Company Number: GB-Accord-240197

PATIENT
  Age: 45 Year
  Sex: Male
  Weight: 98.7 kg

DRUGS (80)
  1. CARBOPLATIN [Suspect]
     Active Substance: CARBOPLATIN
     Dosage: 750 MG, 1Q3W (EVERY 3WEEKS)  (REGIMEN: 1; PHARMACEUTICAL DOSE FORM: 16)
     Route: 042
     Dates: start: 20210901, end: 20210901
  2. CARBOPLATIN [Suspect]
     Active Substance: CARBOPLATIN
     Dosage: (REGIMEN : 1; PHARMACEUTICAL DOSE FORM: 16)
     Route: 042
  3. CARBOPLATIN [Suspect]
     Active Substance: CARBOPLATIN
     Dosage: (REGIMEN : 1; PHARMACEUTICAL DOSE FORM: 16)
     Route: 065
  4. CARBOPLATIN [Suspect]
     Active Substance: CARBOPLATIN
     Dosage: UNK (PHARMACEUTICAL DOSE FORM: 16)
     Route: 042
  5. CARBOPLATIN [Suspect]
     Active Substance: CARBOPLATIN
     Indication: Diffuse large B-cell lymphoma stage II
     Dosage: 750 MG, 1Q3W (EVERY 3WEEKS)
     Route: 042
     Dates: start: 20210901
  6. CARBOPLATIN [Suspect]
     Active Substance: CARBOPLATIN
     Dosage: 5 AUC
     Route: 042
     Dates: start: 20211006
  7. CARBOPLATIN [Suspect]
     Active Substance: CARBOPLATIN
     Dosage: UNK
     Route: 042
  8. CARBOPLATIN [Suspect]
     Active Substance: CARBOPLATIN
     Dosage: UNK
     Route: 065
  9. CARBOPLATIN [Suspect]
     Active Substance: CARBOPLATIN
     Dosage: UNK
     Route: 065
  10. CARBOPLATIN [Suspect]
     Active Substance: CARBOPLATIN
     Indication: Diffuse large B-cell lymphoma
     Dosage: UNK UNK, CYCLIC
     Route: 042
     Dates: start: 20210902
  11. CYTARABINE [Suspect]
     Active Substance: CYTARABINE
     Indication: Diffuse large B-cell lymphoma
     Dosage: 2000 MG/M2, EVERY 12 HOURS
     Route: 042
     Dates: start: 20210901, end: 20210901
  12. CYTARABINE [Suspect]
     Active Substance: CYTARABINE
     Dosage: 1Q2H
     Route: 042
     Dates: start: 20210902
  13. CYTARABINE [Suspect]
     Active Substance: CYTARABINE
     Dosage: REGIMEN: 1; CUMULATIVE DOSE: 4000 MG/M2; PHARMACEUTICAL DOSAGE FORM: 231
     Route: 065
  14. CYTARABINE [Suspect]
     Active Substance: CYTARABINE
     Dosage: 1000 MG/M2, Q12H
     Route: 042
     Dates: start: 20221006, end: 20221007
  15. CYTARABINE [Suspect]
     Active Substance: CYTARABINE
     Dosage: 1Q2H
     Route: 042
     Dates: start: 20211006, end: 20211007
  16. CYTARABINE [Suspect]
     Active Substance: CYTARABINE
     Dosage: 16 MG, SINGLE
     Route: 042
     Dates: start: 20210922, end: 20210922
  17. CYTARABINE [Suspect]
     Active Substance: CYTARABINE
     Indication: Diffuse large B-cell lymphoma
     Dosage: 1Q2H
     Route: 042
     Dates: start: 20210901, end: 20210902
  18. CYTARABINE [Suspect]
     Active Substance: CYTARABINE
     Indication: Diffuse large B-cell lymphoma stage II
     Dosage: 2000 MG/M2, BID EVERY 12 HOURS
     Route: 042
     Dates: start: 20210901, end: 20210901
  19. CYTARABINE [Suspect]
     Active Substance: CYTARABINE
     Dosage: UNK (CUMULATIVE DOSE: 4000 MG/M2)
     Route: 042
  20. CYTARABINE [Suspect]
     Active Substance: CYTARABINE
     Dosage: UNK (CUMULATIVE DOSE: 6000 MG/M2)
     Route: 042
  21. DEXAMETHASONE [Suspect]
     Active Substance: DEXAMETHASONE
     Dosage: 16 MG, QD (DOSE FORM: 169)
     Route: 048
     Dates: start: 20210909, end: 20210911
  22. DEXAMETHASONE [Suspect]
     Active Substance: DEXAMETHASONE
     Dosage: 16 MG, SINGLE (PHARMACEUTICAL DOSAGE FORM: 169)
     Route: 042
     Dates: start: 20210908, end: 20210908
  23. DEXAMETHASONE [Suspect]
     Active Substance: DEXAMETHASONE
     Dosage: SINGLE
     Route: 048
     Dates: start: 20210923, end: 20210925
  24. DEXAMETHASONE [Suspect]
     Active Substance: DEXAMETHASONE
     Indication: Diffuse large B-cell lymphoma
     Dosage: 40 MG, QD (PHARMACEUTICAL DOSE FORM: 169)
     Route: 048
     Dates: start: 20210902, end: 20210903
  25. DEXAMETHASONE [Suspect]
     Active Substance: DEXAMETHASONE
     Dosage: 16 MG, QD
     Route: 048
     Dates: start: 20210914, end: 20210917
  26. DEXAMETHASONE [Suspect]
     Active Substance: DEXAMETHASONE
     Dosage: 16 MG, QD (SIGNLE)
     Route: 048
     Dates: start: 20210922
  27. DEXAMETHASONE [Suspect]
     Active Substance: DEXAMETHASONE
     Dosage: SINGLE
     Route: 048
     Dates: start: 20210922, end: 20210922
  28. DEXAMETHASONE [Suspect]
     Active Substance: DEXAMETHASONE
     Dosage: 16 MG
     Route: 048
     Dates: start: 20220914, end: 20220917
  29. DEXAMETHASONE [Suspect]
     Active Substance: DEXAMETHASONE
     Dosage: 40 MG, QD (SINGLE)
     Route: 048
     Dates: start: 20211009
  30. DEXAMETHASONE [Suspect]
     Active Substance: DEXAMETHASONE
     Indication: Diffuse large B-cell lymphoma stage II
     Dosage: SINGLE
     Route: 048
     Dates: start: 20210901, end: 20210903
  31. DEXAMETHASONE [Suspect]
     Active Substance: DEXAMETHASONE
     Dosage: SINGLE
     Route: 048
     Dates: start: 20211008
  32. DEXAMETHASONE [Suspect]
     Active Substance: DEXAMETHASONE
     Indication: Diffuse large B-cell lymphoma
     Dosage: SINGLE
     Route: 048
     Dates: start: 20210831, end: 20210831
  33. DALTEPARIN [Suspect]
     Active Substance: DALTEPARIN
     Indication: Prophylaxis
     Dosage: 5000 IU, QD
     Route: 058
     Dates: start: 202107, end: 20210908
  34. DALTEPARIN [Suspect]
     Active Substance: DALTEPARIN
     Dosage: UNK UNK, QD (500 UNITS)
     Route: 058
     Dates: start: 202109, end: 20210908
  35. EPCORITAMAB [Suspect]
     Active Substance: EPCORITAMAB
     Dosage: 48 MF, FULL DOSE
     Route: 058
     Dates: start: 20210922
  36. EPCORITAMAB [Suspect]
     Active Substance: EPCORITAMAB
     Indication: Diffuse large B-cell lymphoma stage II
     Dosage: 0.8 MG, SINGLE (PRIMING DOSE) (PHARMACEUTICAL DOSE FORM: 15)
     Route: 058
     Dates: start: 20210901, end: 20210901
  37. EPCORITAMAB [Suspect]
     Active Substance: EPCORITAMAB
     Indication: Diffuse large B-cell lymphoma
     Dosage: UNK, (PHARMACEUTICAL DOSAGE FORM: 15; CUMULATIVE DOSE: 0.96 MG)
     Route: 065
  38. EPCORITAMAB [Suspect]
     Active Substance: EPCORITAMAB
     Dosage: UNK, (PHARMACEUTICAL DOSAGE FORM: 15; CUMULATIVE DOSE: 0.96 MG)
     Route: 065
  39. EPCORITAMAB [Suspect]
     Active Substance: EPCORITAMAB
     Dosage: 0.8 MILLIGRAM, SINGLE
     Route: 058
     Dates: start: 20210908, end: 20210908
  40. EPCORITAMAB [Suspect]
     Active Substance: EPCORITAMAB
     Dosage: C2D15
     Route: 058
     Dates: start: 20211013
  41. FRAGMIN [Suspect]
     Active Substance: DALTEPARIN SODIUM
     Indication: Prophylaxis
     Dosage: UNK UNK, QD (5000 UNITS) (PHARMACEUTICAL DOSE FORM: 231)
     Route: 058
     Dates: start: 202107, end: 20210908
  42. OXALIPLATIN [Suspect]
     Active Substance: OXALIPLATIN
     Indication: Diffuse large B-cell lymphoma
     Dosage: (REGIMEN : 1; PHARMACEUTICAL DOSE FORM: 16)
     Route: 042
  43. OXALIPLATIN [Suspect]
     Active Substance: OXALIPLATIN
     Dosage: UNK (REGIMEN : 1; PHARMACEUTICAL DOSE FORM: 16)
     Route: 042
  44. OXALIPLATIN [Suspect]
     Active Substance: OXALIPLATIN
     Dosage: UNK (DOSE FORM: 16)
     Route: 042
  45. OXALIPLATIN [Suspect]
     Active Substance: OXALIPLATIN
     Indication: Diffuse large B-cell lymphoma stage II
     Dosage: UNK
     Route: 042
  46. OXALIPLATIN [Suspect]
     Active Substance: OXALIPLATIN
     Dosage: UNK
     Route: 065
  47. RITUXIMAB [Suspect]
     Active Substance: RITUXIMAB
     Indication: Diffuse large B-cell lymphoma stage II
     Dosage: 375 MG/M2, 1Q3W (PHARMACEUTICAL DOSE FORM: 16)
     Route: 042
     Dates: start: 20210831, end: 20210831
  48. RITUXIMAB [Suspect]
     Active Substance: RITUXIMAB
     Dosage: UNK
     Route: 065
     Dates: start: 202008, end: 202009
  49. RITUXIMAB [Suspect]
     Active Substance: RITUXIMAB
     Dosage: UNK(PHARMACEUTICAL DOSE FORM: 16)
     Route: 065
     Dates: start: 201912, end: 202004
  50. RITUXIMAB [Suspect]
     Active Substance: RITUXIMAB
     Dosage: UNK, (REGIMEN : 1; PHARMACEUTICAL DOSE FORM: 16)
     Route: 065
  51. RITUXIMAB [Suspect]
     Active Substance: RITUXIMAB
     Dosage: UNK, (REGIMEN : 1; PHARMACEUTICAL DOSE FORM: 16)
     Route: 065
  52. RITUXIMAB [Suspect]
     Active Substance: RITUXIMAB
     Indication: Diffuse large B-cell lymphoma
     Dosage: 1Q3W
     Route: 042
     Dates: start: 20211006
  53. RITUXIMAB [Suspect]
     Active Substance: RITUXIMAB
     Dosage: UNK
     Route: 065
     Dates: start: 202008, end: 202009
  54. RITUXIMAB [Suspect]
     Active Substance: RITUXIMAB
     Dosage: UNK
     Route: 065
  55. RITUXIMAB [Suspect]
     Active Substance: RITUXIMAB
     Dosage: UNK
     Route: 065
  56. RITUXIMAB [Suspect]
     Active Substance: RITUXIMAB
     Dosage: UNK, (PHARMACEUTICAL DOSE FORM: 16)
     Route: 065
     Dates: start: 201912, end: 202004
  57. ACYCLOVIR [Concomitant]
     Active Substance: ACYCLOVIR
     Indication: Product used for unknown indication
     Dosage: UNK
     Route: 065
     Dates: start: 202103
  58. CHLORPHENIRAMINE MALEATE [Concomitant]
     Active Substance: CHLORPHENIRAMINE MALEATE
     Indication: Premedication
     Dosage: 10 MG
     Route: 042
     Dates: start: 20210831, end: 20210831
  59. CHLORPHENIRAMINE MALEATE [Concomitant]
     Active Substance: CHLORPHENIRAMINE MALEATE
     Indication: Product used for unknown indication
     Dosage: 10 MG
     Route: 042
     Dates: start: 20210901, end: 20210901
  60. CHLORPHENIRAMINE MALEATE [Concomitant]
     Active Substance: CHLORPHENIRAMINE MALEATE
     Dosage: 10 MG
     Route: 042
     Dates: start: 20210908, end: 20210908
  61. CHLORPHENIRAMINE MALEATE [Concomitant]
     Active Substance: CHLORPHENIRAMINE MALEATE
     Dosage: 10 MG
     Route: 042
     Dates: start: 20210908, end: 20210922
  62. CHLORPHENIRAMINE MALEATE [Concomitant]
     Active Substance: CHLORPHENIRAMINE MALEATE
     Indication: Premedication
     Dosage: 10 MG
     Route: 042
     Dates: start: 20210831, end: 20210831
  63. CHLORPHENIRAMINE MALEATE [Concomitant]
     Active Substance: CHLORPHENIRAMINE MALEATE
     Indication: Product used for unknown indication
     Dosage: 10 MG
     Route: 042
     Dates: start: 20210901, end: 20210901
  64. CHLORPHENIRAMINE MALEATE [Concomitant]
     Active Substance: CHLORPHENIRAMINE MALEATE
     Dosage: 10 MG
     Route: 042
     Dates: start: 20210908, end: 20210908
  65. CHLORPHENIRAMINE MALEATE [Concomitant]
     Active Substance: CHLORPHENIRAMINE MALEATE
     Dosage: UNK
     Route: 065
     Dates: start: 20210908, end: 20210922
  66. DEXAMETHASONE [Concomitant]
     Active Substance: DEXAMETHASONE
     Dosage: 16 MG
     Route: 042
     Dates: start: 20210908, end: 20210908
  67. DEXAMETHASONE [Concomitant]
     Active Substance: DEXAMETHASONE
     Dosage: 16 MG
     Route: 048
     Dates: start: 20210908, end: 20210908
  68. DEXAMETHASONE [Concomitant]
     Active Substance: DEXAMETHASONE
     Indication: Prophylaxis
     Dosage: UNK
     Route: 065
     Dates: start: 20210902, end: 20210911
  69. DEXAMETHASONE [Concomitant]
     Active Substance: DEXAMETHASONE
     Dosage: UNK MG
     Route: 065
     Dates: start: 20210902, end: 20210911
  70. FILGRASTIM [Concomitant]
     Active Substance: FILGRASTIM
     Indication: Product used for unknown indication
     Dosage: UNK
     Route: 065
     Dates: start: 202104
  71. FLUOXETINE [Concomitant]
     Active Substance: FLUOXETINE HYDROCHLORIDE
     Indication: Product used for unknown indication
     Dosage: UNK
     Route: 065
     Dates: start: 202103
  72. FOLIC ACID [Concomitant]
     Active Substance: FOLIC ACID
     Indication: Product used for unknown indication
     Dosage: UNK
     Route: 065
     Dates: start: 202104
  73. LANSOPRAZOLE [Concomitant]
     Active Substance: LANSOPRAZOLE
     Indication: Product used for unknown indication
     Dosage: UNK
     Route: 065
     Dates: start: 202104
  74. METOCLOPRAMIDE [Concomitant]
     Active Substance: METOCLOPRAMIDE
     Indication: Product used for unknown indication
     Dosage: UNK
     Route: 065
     Dates: start: 20211011
  75. ONDANSETRON [Concomitant]
     Active Substance: ONDANSETRON
     Indication: Product used for unknown indication
     Dosage: UNK
     Route: 065
     Dates: start: 20210901, end: 20210901
  76. ACETAMINOPHEN [Concomitant]
     Active Substance: ACETAMINOPHEN
     Indication: Premedication
     Dosage: 1 G
     Route: 048
     Dates: start: 20210831, end: 20210908
  77. ACETAMINOPHEN [Concomitant]
     Active Substance: ACETAMINOPHEN
     Dosage: 1 G
     Route: 048
     Dates: start: 20210908, end: 20210922
  78. ACETAMINOPHEN [Concomitant]
     Active Substance: ACETAMINOPHEN
     Indication: Product used for unknown indication
     Dosage: UNK
     Route: 048
     Dates: start: 20210901
  79. ACETAMINOPHEN [Concomitant]
     Active Substance: ACETAMINOPHEN
     Dosage: UNK
     Route: 048
     Dates: start: 20210908, end: 20210908
  80. POSACONAZOLE [Concomitant]
     Active Substance: POSACONAZOLE
     Indication: Product used for unknown indication
     Dosage: UNK
     Route: 065
     Dates: start: 202107

REACTIONS (8)
  - Febrile neutropenia [Recovered/Resolved]
  - Thrombocytopenia [Recovered/Resolved]
  - Neutropenic infection [Recovered/Resolved]
  - Cellulitis [Recovered/Resolved]
  - Neutropenia [Unknown]
  - Product use issue [Unknown]
  - Incorrect route of product administration [Unknown]
  - Disease progression [Unknown]

NARRATIVE: CASE EVENT DATE: 20210908
